FAERS Safety Report 7528919-3 (Version None)
Quarter: 2011Q2

REPORT INFORMATION
  Report Type: 
  Country: None (occurrence: None)
  Receive Date: 20110607
  Receipt Date: 20110524
  Transmission Date: 20111010
  Serious: Yes (Other)
  Sender: FDA-Public Use
  Company Number: PHHY2011RU46071

PATIENT
  Age: 72 Year
  Sex: Male

DRUGS (3)
  1. NORMODIPIN [Concomitant]
     Indication: HYPOTENSION
     Dosage: 5 MG, UNK
     Dates: start: 20050101
  2. PHYSIOTENS [Concomitant]
     Indication: HYPOTENSION
     Dosage: 0.4 MG DAILY, UNK
     Dates: start: 20100101
  3. RASILEZ [Suspect]
     Indication: HYPERTENSION
     Dosage: 150 MG DAILY NIGHT TIME, UNK
     Dates: start: 20101001, end: 20110101

REACTIONS (3)
  - SWELLING FACE [None]
  - NASAL CONGESTION [None]
  - ERYTHEMA [None]
